FAERS Safety Report 10344439 (Version 1)
Quarter: 2014Q3

REPORT INFORMATION
  Report Type: Spontaneous
  Country: US (occurrence: None)
  Receive Date: 20140725
  Receipt Date: 20140725
  Transmission Date: 20150326
  Serious: No
  Sender: FDA-Public Use
  Company Number: None

PATIENT

DRUGS (2)
  1. AMIODARONE [Suspect]
     Active Substance: AMIODARONE
     Dosage: INJECTION?SINGLE USE VIALS ?150 MG/3ML (50 MG/ML
     Route: 042
  2. TERBUTALINE SULFATE. [Suspect]
     Active Substance: TERBUTALINE SULFATE
     Route: 042

REACTIONS (3)
  - Product size issue [None]
  - Product colour issue [None]
  - Product packaging issue [None]
